FAERS Safety Report 5850732-3 (Version None)
Quarter: 2008Q3

REPORT INFORMATION
  Report Type: 
  Country: None (occurrence: None)
  Receive Date: 20080819
  Receipt Date: 20080819
  Transmission Date: 20090109
  Serious: No
  Sender: FDA-Public Use
  Company Number: None

PATIENT
  Age: 49 Year
  Sex: Male
  Weight: 63.5036 kg

DRUGS (1)
  1. CIPROFLOXACIN HCL [Suspect]
     Indication: SIALOADENITIS
     Dosage: 500MG ONCE A DAY PO
     Route: 048
     Dates: start: 20041118, end: 20041207

REACTIONS (13)
  - ARTHRALGIA [None]
  - BURNING SENSATION [None]
  - HYPOAESTHESIA [None]
  - JOINT STIFFNESS [None]
  - JOINT SWELLING [None]
  - MUSCULOSKELETAL PAIN [None]
  - ORTHOSIS USER [None]
  - PAIN IN EXTREMITY [None]
  - PARAESTHESIA [None]
  - RASH ERYTHEMATOUS [None]
  - SKIN EXFOLIATION [None]
  - TENDON DISORDER [None]
  - TONGUE DISCOLOURATION [None]
